FAERS Safety Report 14964726 (Version 2)
Quarter: 2018Q2

REPORT INFORMATION
  Report Type: Spontaneous
  Country: DK (occurrence: DK)
  Receive Date: 20180601
  Receipt Date: 20180605
  Transmission Date: 20180711
  Serious: Yes (Other)
  Sender: FDA-Public Use
  Company Number: DK-JNJFOC-20180538153

PATIENT
  Age: 62 Year
  Sex: Male

DRUGS (1)
  1. REMICADE [Suspect]
     Active Substance: INFLIXIMAB
     Indication: CROHN^S DISEASE
     Route: 042
     Dates: start: 20140722, end: 20141030

REACTIONS (9)
  - Parkinsonism [Not Recovered/Not Resolved]
  - Headache [Unknown]
  - Tremor [Not Recovered/Not Resolved]
  - Movement disorder [Unknown]
  - Resting tremor [Not Recovered/Not Resolved]
  - Reduced facial expression [Not Recovered/Not Resolved]
  - Head titubation [Not Recovered/Not Resolved]
  - Discomfort [Recovered/Resolved]
  - Dopamine transporter scintigraphy abnormal [Unknown]

NARRATIVE: CASE EVENT DATE: 2014
